FAERS Safety Report 18974266 (Version 1)
Quarter: 2021Q1

REPORT INFORMATION
  Report Type: Spontaneous
  Country: US (occurrence: US)
  Receive Date: 20210305
  Receipt Date: 20210305
  Transmission Date: 20210420
  Serious: Yes (Death, Other)
  Sender: FDA-Public Use
  Company Number: US-SYNEX-T202100879

PATIENT
  Age: 66 Year
  Sex: Female

DRUGS (1)
  1. INOMAX [Suspect]
     Active Substance: NITRIC OXIDE
     Indication: COVID-19
     Dosage: 40 PPM (INHALATION)
     Route: 055
     Dates: start: 20210213, end: 20210216

REACTIONS (6)
  - Oxygen saturation decreased [Unknown]
  - Product use in unapproved indication [Unknown]
  - Pneumothorax [Recovered/Resolved]
  - Product use issue [Unknown]
  - Device failure [Recovered/Resolved]
  - COVID-19 [Fatal]

NARRATIVE: CASE EVENT DATE: 202102
